FAERS Safety Report 24109153 (Version 1)
Quarter: 2024Q3

REPORT INFORMATION
  Report Type: Spontaneous
  Country: US (occurrence: None)
  Receive Date: 20240717
  Receipt Date: 20240717
  Transmission Date: 20241017
  Serious: Yes (Hospitalization)
  Sender: Public
  Company Number: None

PATIENT
  Age: 83 Year
  Sex: Female
  Weight: 44.2 kg

DRUGS (3)
  1. FLUOROURACIL [Suspect]
     Active Substance: FLUOROURACIL
  2. LEUCOVORIN CALCIUM [Concomitant]
  3. ELOXATIN [Concomitant]
     Active Substance: OXALIPLATIN

REACTIONS (6)
  - Small intestinal obstruction [None]
  - Hypotension [None]
  - Atrial fibrillation [None]
  - Acute kidney injury [None]
  - Ejection fraction decreased [None]
  - Hypervolaemia [None]

NARRATIVE: CASE EVENT DATE: 20240131
